FAERS Safety Report 12290375 (Version 1)
Quarter: 2016Q2

REPORT INFORMATION
  Report Type: Spontaneous
  Country: CH (occurrence: CH)
  Receive Date: 20160421
  Receipt Date: 20160421
  Transmission Date: 20160815
  Serious: Yes (Death, Other)
  Sender: FDA-Public Use
  Company Number: CH-BAYER-2016-069540

PATIENT
  Age: 2 Day
  Sex: Female
  Weight: 2.6 kg

DRUGS (9)
  1. INSULIN [Concomitant]
     Active Substance: INSULIN NOS
     Route: 064
  2. DOBUTAMINE [Concomitant]
     Active Substance: DOBUTAMINE\DOBUTAMINE HYDROCHLORIDE
     Indication: HAEMODYNAMIC INSTABILITY
     Route: 041
     Dates: start: 20151006, end: 20151006
  3. NORADRENALIN [Concomitant]
     Active Substance: NOREPINEPHRINE\NOREPINEPHRINE BITARTRATE
     Indication: HAEMODYNAMIC INSTABILITY
     Route: 041
     Dates: start: 20151006, end: 20151006
  4. DORMICUM [Concomitant]
     Active Substance: MIDAZOLAM\MIDAZOLAM HYDROCHLORIDE
     Indication: SEIZURE
     Route: 041
     Dates: start: 20151005, end: 20151006
  5. PHENYDANTIN [PHENYTOIN] [Concomitant]
     Indication: SEIZURE
     Route: 041
     Dates: start: 20151006, end: 20151006
  6. NITROGEN. [Concomitant]
     Active Substance: NITROGEN
     Indication: NEONATAL HYPOXIA
     Route: 041
     Dates: start: 20151006, end: 20151006
  7. GARDENAL [Concomitant]
     Active Substance: PHENOBARBITAL
     Indication: SEIZURE
     Route: 041
     Dates: start: 20151006, end: 20151006
  8. ASPIRIN CARDIO [Suspect]
     Active Substance: ASPIRIN
     Dosage: 1 DF, UNK
     Route: 064
  9. THAM [Suspect]
     Active Substance: TROMETHAMINE
     Indication: ACIDOSIS
     Dosage: 78 MMOL, UNK
     Route: 041
     Dates: start: 20151006, end: 20151006

REACTIONS (11)
  - Cerebral haemorrhage [Fatal]
  - Hyperkalaemia [Recovered/Resolved]
  - Hypocapnia [Recovered/Resolved]
  - Respiratory depression [Recovered/Resolved]
  - Accidental overdose [None]
  - Alkalosis [Recovered/Resolved]
  - Hypoglycaemia [Recovered/Resolved]
  - Seizure [Recovered/Resolved]
  - Hyponatraemia [Recovered/Resolved]
  - Off label use [None]
  - Hypotension [Recovered/Resolved]

NARRATIVE: CASE EVENT DATE: 20151006
